FAERS Safety Report 8265569-8 (Version None)
Quarter: 2012Q2

REPORT INFORMATION
  Report Type: 
  Country: None (occurrence: None)
  Receive Date: 20120403
  Receipt Date: 20120326
  Transmission Date: 20120825
  Serious: Yes (Hospitalization)
  Sender: FDA-Public Use
  Company Number: 131913

PATIENT
  Age: 19 Year
  Sex: Male

DRUGS (2)
  1. ETOPOSIDE [Suspect]
     Dosage: 60MG/M2 FOR 5 CONSECUTIVE DAYS
  2. CISPLATIN [Suspect]
     Indication: NONGERMINOMATOUS GERM CELL TUMOUR OF THE CNS
     Dosage: 20MG/M2 FOR FIVE CONSECUTIVE DAYS

REACTIONS (2)
  - BRAIN NEOPLASM [None]
  - MENINGIOMA [None]
